FAERS Safety Report 5705224-9 (Version None)
Quarter: 2008Q2

REPORT INFORMATION
  Report Type: 
  Country: None (occurrence: None)
  Receive Date: 20080411
  Receipt Date: 20080307
  Transmission Date: 20081010
  Serious: No
  Sender: FDA-Public Use
  Company Number: ADE# 08-031

PATIENT
  Age: 39 Year
  Sex: Male
  Weight: 117.9352 kg

DRUGS (5)
  1. PANTOPRAZOLE SODIUM [Suspect]
     Indication: GASTROOESOPHAGEAL REFLUX DISEASE
     Dosage: ONCE, DAILY
     Dates: start: 20080211, end: 20080301
  2. METFORMIN HCL [Concomitant]
  3. GLIPIZIDE [Concomitant]
  4. LANTUS [Concomitant]
  5. OXYCODONE HCL [Concomitant]

REACTIONS (3)
  - DRUG INEFFECTIVE [None]
  - PAIN [None]
  - PHARMACEUTICAL PRODUCT COMPLAINT [None]
